FAERS Safety Report 18640944 (Version 1)
Quarter: 2020Q4

REPORT INFORMATION
  Report Type: Spontaneous
  Country: BR (occurrence: BR)
  Receive Date: 20201221
  Receipt Date: 20201221
  Transmission Date: 20210114
  Serious: Yes (Other)
  Sender: FDA-Public Use
  Company Number: BR-ROCHE-2732153

PATIENT
  Age: 86 Year
  Sex: Female
  Weight: 78 kg

DRUGS (8)
  1. DECADRON [Concomitant]
     Active Substance: DEXAMETHASONE
     Route: 042
     Dates: start: 20201123
  2. MABTHERA [Suspect]
     Active Substance: RITUXIMAB
     Indication: B-CELL LYMPHOMA
     Route: 065
     Dates: start: 20201123
  3. EMEND [Concomitant]
     Active Substance: APREPITANT
     Route: 042
     Dates: start: 20201123
  4. GENUXAL [Concomitant]
     Active Substance: CYCLOPHOSPHAMIDE
     Indication: B-CELL LYMPHOMA
     Route: 042
     Dates: start: 20201123
  5. DIPHENHYDRAMINE. [Concomitant]
     Active Substance: DIPHENHYDRAMINE
     Route: 042
     Dates: start: 20201123
  6. TYLENOL [Concomitant]
     Active Substance: ACETAMINOPHEN
     Route: 048
     Dates: start: 20201123
  7. ONICIT [Concomitant]
     Active Substance: PALONOSETRON HYDROCHLORIDE
     Route: 042
     Dates: start: 20201123
  8. MESNA. [Concomitant]
     Active Substance: MESNA

REACTIONS (6)
  - Investigation abnormal [Unknown]
  - Somnolence [Recovered/Resolved]
  - Urinary retention [Unknown]
  - Haematuria [Recovered/Resolved]
  - Hypotension [Unknown]
  - Muscle spasms [Unknown]

NARRATIVE: CASE EVENT DATE: 20201123
